FAERS Safety Report 7756992-6 (Version None)
Quarter: 2011Q3

REPORT INFORMATION
  Report Type: 
  Country: None (occurrence: None)
  Receive Date: 20110916
  Receipt Date: 20110916
  Transmission Date: 20111222
  Serious: No
  Sender: FDA-Public Use
  Company Number: None

PATIENT
  Age: 54 Year
  Sex: Female
  Weight: 61.234 kg

DRUGS (2)
  1. LEVAQUIN [Suspect]
     Indication: STAPHYLOCOCCAL INFECTION
     Dosage: 750 MG.
     Route: 048
     Dates: start: 20110426, end: 20110503
  2. LEVAQUIN [Suspect]
     Indication: SINUSITIS
     Dosage: 750 MG.
     Route: 048
     Dates: start: 20110426, end: 20110503

REACTIONS (4)
  - PAIN [None]
  - MUSCULOSKELETAL STIFFNESS [None]
  - PAIN IN JAW [None]
  - MYALGIA [None]
